FAERS Safety Report 17445609 (Version 1)
Quarter: 2020Q1

REPORT INFORMATION
  Report Type: Spontaneous
  Country: FR (occurrence: FR)
  Receive Date: 20200221
  Receipt Date: 20200221
  Transmission Date: 20200409
  Serious: Yes (Other)
  Sender: FDA-Public Use
  Company Number: FR-MYLANLABS-2020M1018433

PATIENT
  Age: 24 Year
  Sex: Male

DRUGS (2)
  1. QUETIAPIN ?MYLAN? [Suspect]
     Active Substance: QUETIAPINE
     Indication: AFFECT LABILITY
     Dosage: 300MG/J DEPUIS 25/11
     Route: 048
     Dates: start: 20190415
  2. BRINTELLIX [Suspect]
     Active Substance: VORTIOXETINE HYDROBROMIDE
     Indication: DEPRESSION
     Route: 048
     Dates: start: 20190415, end: 20191125

REACTIONS (1)
  - Haematemesis [Recovered/Resolved]

NARRATIVE: CASE EVENT DATE: 20190806
